FAERS Safety Report 7064774-6 (Version None)
Quarter: 2010Q4

REPORT INFORMATION
  Report Type: 
  Country: None (occurrence: None)
  Receive Date: 20101027
  Receipt Date: 19840229
  Transmission Date: 20110411
  Serious: Yes (Death)
  Sender: FDA-Public Use
  Company Number: GB-ROCHE-840400038001

PATIENT
  Age: 96 Year
  Sex: Male

DRUGS (2)
  1. CEFTRIAXONE SODIUM [Suspect]
     Indication: PNEUMONIA
     Route: 042
     Dates: start: 19840206
  2. AMINOPHYLLINE [Concomitant]
     Route: 065
     Dates: start: 19840124

REACTIONS (2)
  - CONFUSIONAL STATE [None]
  - RESPIRATORY FAILURE [None]
